FAERS Safety Report 6070487-X (Version None)
Quarter: 2009Q1

REPORT INFORMATION
  Report Type: 
  Country: None (occurrence: None)
  Receive Date: 20090209
  Receipt Date: 20090202
  Transmission Date: 20090719
  Serious: Yes (Death, Hospitalization)
  Sender: FDA-Public Use
  Company Number: US-MERCK-0902USA00104

PATIENT
  Age: 60 Year
  Sex: Male

DRUGS (15)
  1. MECTIZAN [Suspect]
     Indication: STRONGYLOIDIASIS
     Route: 048
     Dates: start: 20020601
  2. MECTIZAN [Suspect]
     Route: 054
     Dates: start: 20050915
  3. AMPICILLIN SODIUM AND SULBACTAM SODIUM [Concomitant]
     Indication: SEPSIS
     Route: 065
     Dates: start: 20050913, end: 20050913
  4. AMPICILLIN SODIUM AND SULBACTAM SODIUM [Concomitant]
     Indication: CARDIOGENIC SHOCK
     Route: 065
     Dates: start: 20050913, end: 20050913
  5. METRONIDAZOLE [Concomitant]
     Indication: SEPSIS
     Route: 065
     Dates: start: 20050913, end: 20050913
  6. METRONIDAZOLE [Concomitant]
     Indication: CARDIOGENIC SHOCK
     Route: 065
     Dates: start: 20050913, end: 20050913
  7. VANCOMYCIN [Concomitant]
     Indication: SEPSIS
     Route: 065
     Dates: start: 20050914, end: 20050915
  8. TOBRAMYCIN [Concomitant]
     Indication: SEPSIS
     Route: 065
     Dates: start: 20050914
  9. PIPERACILLIN SODIUM AND TAZOBACTAM SODIUM [Concomitant]
     Indication: SEPSIS
     Route: 065
     Dates: start: 20050914
  10. DROTRECOGIN ALFA [Concomitant]
     Indication: SEPSIS
     Route: 065
     Dates: start: 20050914
  11. CORTICOSTEROIDS (UNSPECIFIED) [Suspect]
     Route: 065
     Dates: start: 20050914
  12. NOREPINEPHRINE [Concomitant]
     Indication: HYPOTENSION
     Route: 065
     Dates: start: 20050914
  13. VASOPRESSIN [Concomitant]
     Indication: HYPOTENSION
     Route: 065
     Dates: start: 20050914
  14. THIABENDAZOLE [Suspect]
     Indication: STRONGYLOIDIASIS
     Route: 048
     Dates: start: 20050915
  15. THIABENDAZOLE [Suspect]
     Route: 048
     Dates: start: 20040101

REACTIONS (3)
  - DRUG INEFFECTIVE [None]
  - RESPIRATORY FAILURE [None]
  - STRONGYLOIDIASIS [None]
